FAERS Safety Report 5888708-2 (Version None)
Quarter: 2008Q3

REPORT INFORMATION
  Report Type: 
  Country: None (occurrence: None)
  Receive Date: 20080917
  Receipt Date: 20080908
  Transmission Date: 20090109
  Serious: Yes (Death)
  Sender: FDA-Public Use
  Company Number: GXKR2008JP08589

PATIENT
  Age: 79 Year
  Sex: Male

DRUGS (5)
  1. ETHAMBUTOL HCL [Suspect]
     Indication: TUBERCULOUS PLEURISY
     Dosage: UNK ORAL
     Route: 048
     Dates: start: 20080703, end: 20080808
  2. RIFAMPICIN [Suspect]
     Indication: TUBERCULOUS PLEURISY
     Dosage: UNK ORAL
     Route: 048
     Dates: start: 20080703, end: 20080808
  3. ISCOTIN (ISONIAZID) UNKNOWN [Suspect]
     Indication: TUBERCULOUS PLEURISY
     Dosage: UNK ORAL
     Route: 048
     Dates: start: 20080703, end: 20080803
  4. PYRAMIDE (PYRAZINAMIDE) UNKNOWN [Suspect]
     Indication: TUBERCULOUS PLEURISY
     Dosage: UNK ORAL
     Route: 048
     Dates: start: 20080703, end: 20080803
  5. PYDOXAL (PYRIDOXAL PHOSPHATE) UNKNOWN [Suspect]
     Indication: TUBERCULOUS PLEURISY
     Dosage: UNK ORAL
     Route: 048
     Dates: start: 20080703, end: 20080803

REACTIONS (1)
  - HEPATITIS FULMINANT [None]
